FAERS Safety Report 7629451-9 (Version None)
Quarter: 2011Q3

REPORT INFORMATION
  Report Type: 
  Country: None (occurrence: None)
  Receive Date: 20110722
  Receipt Date: 20110721
  Transmission Date: 20111222
  Serious: Yes (Other)
  Sender: FDA-Public Use
  Company Number: CHPA2011US09639

PATIENT
  Age: 80 Year
  Sex: Female
  Weight: 51.701 kg

DRUGS (1)
  1. BENEFIBER W/ WHEAT DEXTRIN [Suspect]
     Indication: ABDOMINAL DISCOMFORT
     Dosage: 4 TSP, QD

REACTIONS (4)
  - MALAISE [None]
  - DIARRHOEA [None]
  - STAPHYLOCOCCAL INFECTION [None]
  - OFF LABEL USE [None]
